FAERS Safety Report 8837856 (Version 1)
Quarter: 2012Q4

REPORT INFORMATION
  Report Type: 
  Country: US (occurrence: US)
  Receive Date: 20121012
  Receipt Date: 20121012
  Transmission Date: 20130627
  Serious: Yes (Hospitalization, Other)
  Sender: FDA-Public Use
  Company Number: US-BAYER-2012-103583

PATIENT
  Age: 35 Year

DRUGS (6)
  1. YASMIN [Suspect]
     Route: 048
  2. EPIPEN [Concomitant]
  3. FLONASE [Concomitant]
     Route: 045
  4. ALBUTEROL [Concomitant]
  5. SINGULAIR [Concomitant]
     Route: 048
  6. LISINOPRIL [Concomitant]
     Route: 048

REACTIONS (2)
  - Deep vein thrombosis [Recovered/Resolved]
  - Gallbladder disorder [None]
